FAERS Safety Report 14577358 (Version 5)
Quarter: 2019Q1

REPORT INFORMATION
  Report Type: Spontaneous
  Country: IT (occurrence: IT)
  Receive Date: 20180227
  Receipt Date: 20190318
  Transmission Date: 20190417
  Serious: Yes (Death, Life-Threatening)
  Sender: FDA-Public Use
  Company Number: IT-MYLANLABS-2018M1012228

PATIENT
  Age: 64 Year
  Sex: Male

DRUGS (5)
  1. BORTEZOMIB. [Suspect]
     Active Substance: BORTEZOMIB
     Indication: CONGENITAL MYOPATHY
     Dosage: UNK
     Route: 065
  2. MELPHALAN. [Suspect]
     Active Substance: MELPHALAN
     Indication: CONGENITAL MYOPATHY
     Dosage: UNK
     Route: 065
  3. PREDNISONE. [Suspect]
     Active Substance: PREDNISONE
     Indication: CONGENITAL MYOPATHY
     Dosage: 0.5 MG/KG, QD ( 0.5-1 MG/KG/DAY)
     Route: 042
  4. HUMAN IMMUNOGLOBULIN [Suspect]
     Active Substance: HUMAN IMMUNOGLOBULIN G
     Indication: CONGENITAL MYOPATHY
     Dosage: 2000 MG/KG, MONTHLY
     Route: 042
  5. HUMAN IMMUNOGLOBULIN [Suspect]
     Active Substance: HUMAN IMMUNOGLOBULIN G
     Dosage: 2000 MG, QD
     Route: 042

REACTIONS (2)
  - Respiratory disorder [Fatal]
  - Drug ineffective for unapproved indication [Fatal]
